FAERS Safety Report 10014447 (Version 1)
Quarter: 2014Q1

REPORT INFORMATION
  Report Type: Report from Study
  Country: CA (occurrence: CA)
  Receive Date: 20140317
  Receipt Date: 20140317
  Transmission Date: 20141002
  Serious: Yes (Hospitalization)
  Sender: FDA-Public Use
  Company Number: CA-JNJFOC-20140306319

PATIENT
  Age: 56 Year
  Sex: Male
  Weight: 69.85 kg

DRUGS (5)
  1. REMICADE [Suspect]
     Indication: CROHN^S DISEASE
     Dosage: 400 MG 0/2/6 WEEKS
     Route: 042
     Dates: start: 20140127, end: 20140310
  2. SOLUCORTEF [Concomitant]
     Indication: PREMEDICATION
     Route: 042
     Dates: start: 20140310
  3. BENADRYL [Concomitant]
     Indication: PREMEDICATION
     Route: 042
     Dates: start: 20140310
  4. NORMAL SALINE [Concomitant]
     Indication: PREMEDICATION
     Route: 042
  5. OXYGEN [Concomitant]
     Indication: PREMEDICATION
     Dosage: 8 LITRES PER MINUTE
     Route: 065
     Dates: start: 20140310

REACTIONS (7)
  - Infusion related reaction [Not Recovered/Not Resolved]
  - Flushing [Not Recovered/Not Resolved]
  - Dyspnoea [Not Recovered/Not Resolved]
  - Rash [Not Recovered/Not Resolved]
  - Dizziness [Not Recovered/Not Resolved]
  - Cold sweat [Not Recovered/Not Resolved]
  - Pallor [Not Recovered/Not Resolved]
